FAERS Safety Report 8415814-0 (Version None)
Quarter: 2012Q2

REPORT INFORMATION
  Report Type: 
  Country: None (occurrence: None)
  Receive Date: 20120606
  Receipt Date: 20120531
  Transmission Date: 20120825
  Serious: Yes (Hospitalization)
  Sender: FDA-Public Use
  Company Number: US-AMGEN-USASP2012034286

PATIENT
  Sex: Female

DRUGS (4)
  1. ENBREL [Suspect]
     Indication: RHEUMATOID ARTHRITIS
     Dosage: 50 MG, QWK
     Dates: start: 20090301
  2. ACTOS [Concomitant]
     Dosage: UNK
  3. METFORMIN HCL [Concomitant]
     Dosage: UNK
  4. REGLAN [Concomitant]
     Dosage: UNK

REACTIONS (9)
  - INFECTION [None]
  - RENAL DISORDER [None]
  - FLUID RETENTION [None]
  - SYNCOPE [None]
  - TRANSIENT ISCHAEMIC ATTACK [None]
  - HEADACHE [None]
  - CHRONIC OBSTRUCTIVE PULMONARY DISEASE [None]
  - BLOOD GLUCOSE INCREASED [None]
  - RENAL CYST [None]
